FAERS Safety Report 5893001-8 (Version None)
Quarter: 2008Q3

REPORT INFORMATION
  Report Type: 
  Country: None (occurrence: None)
  Receive Date: 20080923
  Receipt Date: 20071109
  Transmission Date: 20090109
  Serious: No
  Sender: FDA-Public Use
  Company Number: US-ASTRAZENECA-2007UW12291

PATIENT
  Age: 17698 Day
  Sex: Female
  Weight: 83.2 kg

DRUGS (11)
  1. SEROQUEL [Suspect]
     Indication: SLEEP DISORDER
     Route: 048
     Dates: start: 19970101, end: 20050801
  2. SEROQUEL [Suspect]
     Indication: SCHIZOPHRENIA
     Route: 048
     Dates: start: 19970101, end: 20050801
  3. SEROQUEL [Suspect]
     Indication: DEPRESSION
     Route: 048
     Dates: start: 19970101, end: 20050801
  4. RISPERDAL [Concomitant]
     Indication: SCHIZOPHRENIA
  5. RISPERDAL [Concomitant]
     Indication: DEPRESSION
  6. ABILIFY [Concomitant]
  7. HALDOL SOLUTAB [Concomitant]
     Dates: start: 20060101
  8. WELLBUTRIN [Concomitant]
  9. ZOLOFT [Concomitant]
     Dates: start: 20060101
  10. BUSPAR [Concomitant]
     Dosage: 100 MG UP TO SIX TIMES PER DAY
     Dates: start: 20050101
  11. PROZAC [Concomitant]
     Dosage: 20 OR 25 MG; EVENTUALLY DOUBLED
     Dates: start: 19800101

REACTIONS (3)
  - CARDIAC DISORDER [None]
  - OBESITY [None]
  - TYPE 2 DIABETES MELLITUS [None]
